FAERS Safety Report 7530520-2 (Version None)
Quarter: 2011Q2

REPORT INFORMATION
  Report Type: 
  Country: None (occurrence: None)
  Receive Date: 20110607
  Receipt Date: 20110602
  Transmission Date: 20111010
  Serious: Yes (Hospitalization)
  Sender: FDA-Public Use
  Company Number: US-ABBOTT-11P-163-0730019-00

PATIENT
  Sex: Female
  Weight: 48.124 kg

DRUGS (30)
  1. AZATHIOPRINE [Concomitant]
     Indication: CROHN'S DISEASE
  2. FUROSEMIDE [Concomitant]
     Indication: CARDIAC FAILURE CONGESTIVE
  3. FERROUS SULFATE TAB [Concomitant]
     Indication: ANAEMIA
  4. ZOFRAN [Concomitant]
     Indication: NAUSEA
  5. ACTONEL [Concomitant]
     Indication: OSTEOPOROSIS
  6. COREG [Concomitant]
     Indication: CARDIAC FAILURE CONGESTIVE
  7. HECTOROL [Concomitant]
  8. LANTUS [Concomitant]
     Indication: DIABETES MELLITUS
  9. LEVOTHYROXINE SODIUM [Concomitant]
     Indication: HYPOTHYROIDISM
  10. PREDNISONE [Concomitant]
     Indication: CROHN'S DISEASE
  11. PRILOSEC [Concomitant]
     Indication: CROHN'S DISEASE
  12. VALTREX [Concomitant]
     Indication: ORAL HERPES
  13. LISINOPRIL [Concomitant]
     Indication: HYPERTENSION
  14. SLOW FE [Concomitant]
     Indication: ANAEMIA
  15. HECTOROL [Concomitant]
     Indication: VITAMIN SUPPLEMENTATION
  16. VITAMIN D [Concomitant]
     Indication: VITAMIN SUPPLEMENTATION
  17. HUMIRA [Suspect]
     Indication: CROHN'S DISEASE
     Route: 058
     Dates: start: 20090901, end: 20100901
  18. HUMIRA [Suspect]
     Route: 058
  19. LIPITOR [Concomitant]
     Indication: HYPERLIPIDAEMIA
  20. ZENAVIR CREAM [Concomitant]
     Indication: ORAL HERPES
  21. LACTAID [Concomitant]
     Indication: LACTOSE INTOLERANCE
  22. NOVOLOG [Concomitant]
     Indication: DIABETES MELLITUS
  23. VITAMIN B-12 [Concomitant]
     Indication: MINERAL SUPPLEMENTATION
  24. POTASSIUM CHLORIDE [Concomitant]
     Indication: BLOOD POTASSIUM DECREASED
  25. POTASSIUM PHOSPHATES [Concomitant]
     Indication: BLOOD PHOSPHORUS
  26. QUESTRAN [Concomitant]
     Indication: PRODUCT USED FOR UNKNOWN INDICATION
  27. VIACTIV [Concomitant]
     Indication: BLOOD CALCIUM DECREASED
  28. FOLIC ACID [Concomitant]
     Indication: VITAMIN SUPPLEMENTATION
  29. LUNESTA [Concomitant]
     Indication: INSOMNIA
  30. VIACTIV [Concomitant]
     Indication: VITAMIN D DEFICIENCY

REACTIONS (6)
  - DIARRHOEA [None]
  - NAUSEA [None]
  - ABDOMINAL PAIN [None]
  - FATIGUE [None]
  - FAECAL INCONTINENCE [None]
  - PYREXIA [None]
